FAERS Safety Report 5857981-9 (Version None)
Quarter: 2008Q3

REPORT INFORMATION
  Report Type: 
  Country: None (occurrence: None)
  Receive Date: 20080818
  Receipt Date: 20080617
  Transmission Date: 20090109
  Serious: Yes (Life-Threatening)
  Sender: FDA-Public Use
  Company Number: WAES 0806USA03317

PATIENT
  Age: 70 Year
  Sex: Male
  Weight: 99.7913 kg

DRUGS (8)
  1. JANUVIA [Suspect]
     Indication: TYPE 2 DIABETES MELLITUS
     Dosage: 100 MG/DAILY/PO
     Route: 048
     Dates: start: 20061107, end: 20070628
  2. AVAPRO [Concomitant]
  3. CRESTOR [Concomitant]
  4. GLUCOTROL [Concomitant]
  5. ASPIRIN [Concomitant]
  6. COLCHICINE [Concomitant]
  7. HYDROCHLOROTHIAZIDE [Concomitant]
  8. NITROGLYCERIN [Concomitant]

REACTIONS (1)
  - PHARYNGEAL OEDEMA [None]
